FAERS Safety Report 9105811 (Version 1)
Quarter: 2013Q1

REPORT INFORMATION
  Report Type: Spontaneous
  Country: US (occurrence: US)
  Receive Date: 20130220
  Receipt Date: 20130220
  Transmission Date: 20140127
  Serious: No
  Sender: FDA-Public Use
  Company Number: US-PFIZER INC-2013064048

PATIENT
  Sex: Female

DRUGS (2)
  1. ADVIL [Suspect]
     Indication: PAIN
     Dosage: 200 MG, ONCE A DAY
     Route: 048
     Dates: start: 201302
  2. ADVIL PM [Concomitant]
     Dosage: UNK

REACTIONS (2)
  - Erythema [Recovered/Resolved]
  - Rash macular [Recovered/Resolved]
